FAERS Safety Report 7930885-3 (Version None)
Quarter: 2011Q4

REPORT INFORMATION
  Report Type: 
  Country: None (occurrence: None)
  Receive Date: 20111108
  Receipt Date: 20110208
  Transmission Date: 20120403
  Serious: Yes (Other)
  Sender: FDA-Public Use
  Company Number: PHHY2011US66504

PATIENT
  Age: 54 Year
  Sex: Female
  Weight: 164 kg

DRUGS (2)
  1. ZOMETA [Suspect]
     Indication: METASTASES TO BONE
     Dosage: 4 MG, QMO, INTRAVENOUS
     Route: 042
     Dates: start: 20061101, end: 20100501
  2. TAXOL [Concomitant]

REACTIONS (1)
  - OSTEONECROSIS OF JAW [None]
